FAERS Safety Report 7758385-4 (Version None)
Quarter: 2011Q3

REPORT INFORMATION
  Report Type: 
  Country: None (occurrence: None)
  Receive Date: 20110919
  Receipt Date: 20110914
  Transmission Date: 20111222
  Serious: No
  Sender: FDA-Public Use
  Company Number: US-PFIZER INC-2011217925

PATIENT
  Sex: Female
  Weight: 115 kg

DRUGS (10)
  1. ALAVERT [Suspect]
     Indication: SNEEZING
     Dosage: 10 MG, 1X/DAY
     Route: 048
     Dates: start: 20110830, end: 20110912
  2. ALAVERT [Suspect]
     Indication: RHINORRHOEA
  3. ALAVERT [Suspect]
     Indication: LACRIMATION INCREASED
  4. LOSARTAN [Concomitant]
     Indication: HYPERTENSION
     Dosage: UNK
     Route: 065
  5. SIMVASTATIN [Concomitant]
     Indication: BLOOD CHOLESTEROL INCREASED
     Dosage: UNK
     Route: 065
  6. GLIPIZIDE [Concomitant]
     Indication: DIABETES MELLITUS
     Dosage: UNK
     Route: 065
  7. POTASSIUM [Concomitant]
     Dosage: UNK
     Route: 065
  8. ALAVERT [Suspect]
     Indication: EYE PRURITUS
  9. VITAMIN D [Concomitant]
     Dosage: UNK
     Route: 065
  10. METFORMIN [Concomitant]
     Indication: DIABETES MELLITUS
     Dosage: UNK
     Route: 065

REACTIONS (5)
  - SNEEZING [None]
  - RHINORRHOEA [None]
  - EYE PRURITUS [None]
  - DRUG INEFFECTIVE [None]
  - LACRIMATION INCREASED [None]
